FAERS Safety Report 5756374-2 (Version None)
Quarter: 2008Q2

REPORT INFORMATION
  Report Type: 
  Country: None (occurrence: None)
  Receive Date: 20080528
  Receipt Date: 20080528
  Transmission Date: 20081010
  Serious: Yes (Hospitalization)
  Sender: FDA-Public Use
  Company Number: None

PATIENT
  Age: 86 Year
  Sex: Male
  Weight: 45.4 kg

DRUGS (2)
  1. METOPROLOL [Suspect]
     Indication: HYPERTENSION
     Dosage: 50 MG BID PO
     Route: 048
     Dates: start: 20080421, end: 20080521
  2. PROPAFENONE HCL [Suspect]
     Indication: VENTRICULAR ARRHYTHMIA
     Dosage: 150 MG TID PO
     Route: 048
     Dates: start: 20080421, end: 20080521

REACTIONS (2)
  - BRADYCARDIA [None]
  - HYPOTENSION [None]
